FAERS Safety Report 7610546-0 (Version None)
Quarter: 2011Q3

REPORT INFORMATION
  Report Type: 
  Country: None (occurrence: None)
  Receive Date: 20110715
  Receipt Date: 20110706
  Transmission Date: 20111222
  Serious: Yes (Death, Hospitalization)
  Sender: FDA-Public Use
  Company Number: FR-CELGENEUS-056-C5013-10062104

PATIENT
  Sex: Female
  Weight: 58 kg

DRUGS (5)
  1. DEXAMETHASONE [Suspect]
     Indication: MULTIPLE MYELOMA
     Dosage: 40 MILLIGRAM
     Route: 065
     Dates: start: 20100518, end: 20100615
  2. DURAGESIC-100 [Concomitant]
     Indication: PAIN
     Dosage: 600 MICROGRAM
     Route: 062
     Dates: start: 20100504, end: 20100909
  3. LOVENOX [Concomitant]
     Indication: PROPHYLAXIS
     Dosage: .4 MILLILITER
  4. ASPIRIN [Concomitant]
     Indication: THROMBOSIS PROPHYLAXIS
     Dosage: 75 MILLIGRAM
     Route: 048
     Dates: start: 20060101, end: 20100619
  5. LENALIDOMIDE [Suspect]
     Indication: MULTIPLE MYELOMA
     Dosage: 25 MILLIGRAM
     Route: 048
     Dates: start: 20100518, end: 20100615

REACTIONS (1)
  - GASTROINTESTINAL NEOPLASM [None]
